FAERS Safety Report 25735809 (Version 1)
Quarter: 2025Q3

REPORT INFORMATION
  Report Type: Spontaneous
  Country: US (occurrence: US)
  Receive Date: 20250828
  Receipt Date: 20250828
  Transmission Date: 20251021
  Serious: No
  Sender: PFIZER
  Company Number: US-PFIZER INC-202500170156

PATIENT
  Age: 51 Year
  Sex: Female

DRUGS (2)
  1. EXEMESTANE [Suspect]
     Active Substance: EXEMESTANE
  2. GOSERELIN [Suspect]
     Active Substance: GOSERELIN

REACTIONS (3)
  - Angiopathy [Unknown]
  - Arthralgia [Unknown]
  - Myalgia [Unknown]
